FAERS Safety Report 23417654 (Version 1)
Quarter: 2024Q1

REPORT INFORMATION
  Report Type: Spontaneous
  Country: US (occurrence: None)
  Receive Date: 20240118
  Receipt Date: 20240118
  Transmission Date: 20240409
  Serious: Yes (Death, Hospitalization)
  Sender: FDA-Public Use
  Company Number: None

PATIENT
  Age: 50 Year
  Sex: Male
  Weight: 101 kg

DRUGS (5)
  1. FLUOROURACIL [Suspect]
     Active Substance: FLUOROURACIL
     Dates: end: 20231230
  2. CAMPTOSAR [Suspect]
     Active Substance: IRINOTECAN HYDROCHLORIDE
     Dates: end: 20231201
  3. LEUCOVORIN CALCIUM [Suspect]
     Active Substance: LEUCOVORIN CALCIUM
     Dates: end: 20231201
  4. NIVOLUMAB [Suspect]
     Active Substance: NIVOLUMAB
     Dates: end: 20231201
  5. ELOXATIN [Suspect]
     Active Substance: OXALIPLATIN
     Dates: end: 20231230

REACTIONS (7)
  - Nausea [None]
  - Vomiting [None]
  - Ascites [None]
  - Abdominal pain [None]
  - Drug ineffective [None]
  - Disease progression [None]
  - Product dose omission issue [None]

NARRATIVE: CASE EVENT DATE: 20231226
